FAERS Safety Report 24798047 (Version 2)
Quarter: 2025Q1

REPORT INFORMATION
  Report Type: Spontaneous
  Country: IT (occurrence: IT)
  Receive Date: 20250102
  Receipt Date: 20250103
  Transmission Date: 20250409
  Serious: Yes (Other)
  Sender: ALEXION PHARMACEUTICALS
  Company Number: IT-GERMAN-LIT/ITA/24/0018590

PATIENT
  Age: 63 Year

DRUGS (8)
  1. FASLODEX [Suspect]
     Active Substance: FULVESTRANT
     Indication: Breast cancer metastatic
     Route: 065
  2. FASLODEX [Suspect]
     Active Substance: FULVESTRANT
     Route: 065
  3. FASLODEX [Suspect]
     Active Substance: FULVESTRANT
     Route: 065
  4. FASLODEX [Suspect]
     Active Substance: FULVESTRANT
     Route: 065
  5. PALBOCICLIB [Suspect]
     Active Substance: PALBOCICLIB
     Indication: Breast cancer metastatic
     Route: 065
  6. PALBOCICLIB [Suspect]
     Active Substance: PALBOCICLIB
     Route: 065
  7. PALBOCICLIB [Suspect]
     Active Substance: PALBOCICLIB
     Route: 065
  8. PALBOCICLIB [Suspect]
     Active Substance: PALBOCICLIB
     Route: 065

REACTIONS (1)
  - Malignant neoplasm progression [Unknown]
